FAERS Safety Report 8874938 (Version 1)
Quarter: 2012Q4

REPORT INFORMATION
  Report Type: Report from Study
  Country: US (occurrence: US)
  Receive Date: 20121030
  Receipt Date: 20121030
  Transmission Date: 20130627
  Serious: Yes (Other)
  Sender: FDA-Public Use
  Company Number: US-JNJFOC-20121014037

PATIENT
  Age: 62 Year
  Sex: Male
  Weight: 96.16 kg

DRUGS (18)
  1. XARELTO [Suspect]
     Indication: CEREBROVASCULAR ACCIDENT PROPHYLAXIS
     Route: 048
     Dates: start: 20121018, end: 20121021
  2. XARELTO [Suspect]
     Indication: ATRIAL FIBRILLATION
     Route: 048
     Dates: start: 20121018, end: 20121021
  3. METOPROLOL [Concomitant]
     Indication: HYPERTENSION
     Route: 048
     Dates: start: 2011
  4. LOSARTAN [Concomitant]
     Indication: HYPERTENSION
     Dates: start: 2012
  5. JALYN [Concomitant]
     Dosage: 0.5mg/0.4mg/tablet

mg/
     Dates: start: 2011
  6. METFORMIN [Concomitant]
     Indication: DIABETES MELLITUS
     Route: 048
     Dates: start: 2011
  7. LANTUS [Concomitant]
     Indication: DIABETES MELLITUS
     Route: 058
     Dates: start: 2012
  8. FUROSEMIDE [Concomitant]
     Indication: DIURETIC THERAPY
     Route: 048
     Dates: start: 2012
  9. NIASPAN [Concomitant]
     Indication: BLOOD TRIGLYCERIDES
     Route: 048
     Dates: start: 2009
  10. POTASSIUM [Concomitant]
     Indication: MINERAL SUPPLEMENTATION
     Route: 048
  11. PROTONIX [Concomitant]
     Indication: GASTROOESOPHAGEAL REFLUX DISEASE
     Route: 048
     Dates: start: 1996
  12. MODAFINIL [Concomitant]
     Dates: start: 2011
  13. LEVOTHYROXINE [Concomitant]
     Indication: THYROID DISORDER
     Route: 048
     Dates: start: 2011
  14. CYMBALTA [Concomitant]
     Route: 048
     Dates: start: 2011
  15. OXYCONTIN [Concomitant]
     Indication: PAIN
     Dates: start: 2009
  16. OXYCODONE [Concomitant]
     Indication: PAIN
     Route: 048
     Dates: start: 2009
  17. GLIPIZIDE [Concomitant]
     Indication: DIABETES MELLITUS
     Route: 048
  18. VOLTAREN [Concomitant]
     Route: 061
     Dates: start: 2012

REACTIONS (3)
  - Asthenia [Recovered/Resolved]
  - Pain in extremity [Recovered/Resolved]
  - Headache [Recovered/Resolved]
